FAERS Safety Report 19858249 (Version 1)
Quarter: 2021Q3

REPORT INFORMATION
  Report Type: Other
  Country: US (occurrence: US)
  Receive Date: 20210921
  Receipt Date: 20210921
  Transmission Date: 20211014
  Serious: Yes (Other)
  Sender: FDA-Public Use
  Company Number: US-ROCHE-2910995

PATIENT
  Sex: Female

DRUGS (2)
  1. XELODA [Suspect]
     Active Substance: CAPECITABINE
     Indication: METASTASES TO BONE
  2. XELODA [Suspect]
     Active Substance: CAPECITABINE
     Indication: BREAST CANCER
     Dosage: 2 TABLETS BY MOUTH TWICE A DAY FOR 14 DAYS , FOLLOWED BY 7 DAYS OFF.
     Route: 048

REACTIONS (6)
  - Asthenia [Unknown]
  - Hepatic cancer [Unknown]
  - Cerebral disorder [Unknown]
  - Fatigue [Unknown]
  - Neoplasm malignant [Unknown]
  - Anaemia [Unknown]
